FAERS Safety Report 5347497-0 (Version None)
Quarter: 2007Q2

REPORT INFORMATION
  Report Type: 
  Country: None (occurrence: None)
  Receive Date: 20070604
  Receipt Date: 20070604
  Transmission Date: 20071010
  Serious: No
  Sender: FDA-Public Use
  Company Number: None

PATIENT
  Sex: Female
  Weight: 61.2356 kg

DRUGS (1)
  1. ACTONEL [Suspect]
     Indication: OSTEOPENIA
     Dosage: 35MG ONCE / WEEK PO
     Route: 048
     Dates: start: 20061107, end: 20061205

REACTIONS (6)
  - BONE PAIN [None]
  - BURSITIS [None]
  - DECREASED ACTIVITY [None]
  - GAIT DISTURBANCE [None]
  - MYALGIA [None]
  - NO THERAPEUTIC RESPONSE [None]
